FAERS Safety Report 17353586 (Version 1)
Quarter: 2020Q1

REPORT INFORMATION
  Report Type: Spontaneous
  Country: US (occurrence: US)
  Receive Date: 20200115
  Receipt Date: 20200115
  Transmission Date: 20200409
  Serious: Yes (Death, Hospitalization)
  Sender: FDA-Public Use
  Company Number: None

PATIENT
  Age: 64 Year
  Sex: Female

DRUGS (11)
  1. DILTIAZEM. [Concomitant]
     Active Substance: DILTIAZEM
  2. VITAMIN D3 [Concomitant]
     Active Substance: CHOLECALCIFEROL
  3. ADVAIR DISKUS [Concomitant]
     Active Substance: FLUTICASONE PROPIONATE\SALMETEROL XINAFOATE
  4. WARFARIN [Concomitant]
     Active Substance: WARFARIN
  5. K-TAB [Concomitant]
     Active Substance: POTASSIUM CHLORIDE
  6. FUROSEMIDE. [Concomitant]
     Active Substance: FUROSEMIDE
  7. DRISDOL [Concomitant]
     Active Substance: ERGOCALCIFEROL
  8. AMBRISENTAN 10MG TABLETS 30/BO: 10MG [Suspect]
     Active Substance: AMBRISENTAN
     Indication: PULMONARY ARTERIAL HYPERTENSION
     Route: 048
     Dates: start: 201911, end: 202001
  9. METOPROLOL. [Concomitant]
     Active Substance: METOPROLOL
  10. IPRATROPIUM HFA [Concomitant]
  11. IPRATROPIUM INH SOLN [Concomitant]

REACTIONS (4)
  - Generalised oedema [None]
  - Lethargy [None]
  - Fluid overload [None]
  - Respiratory distress [None]

NARRATIVE: CASE EVENT DATE: 20191206
